FAERS Safety Report 5920809-2 (Version None)
Quarter: 2008Q4

REPORT INFORMATION
  Report Type: 
  Country: None (occurrence: None)
  Receive Date: 20081016
  Receipt Date: 20081011
  Transmission Date: 20090506
  Serious: Yes (Death)
  Sender: FDA-Public Use
  Company Number: US-BAYER-200823910GPV

PATIENT
  Age: 63 Year
  Sex: Male
  Weight: 72 kg

DRUGS (3)
  1. CAMPATH [Suspect]
     Indication: CHRONIC LYMPHOCYTIC LEUKAEMIA
     Route: 042
     Dates: start: 20080408
  2. CAMPATH [Suspect]
     Route: 042
     Dates: start: 20080415, end: 20080710
  3. FLUDARA [Suspect]
     Indication: CHRONIC LYMPHOCYTIC LEUKAEMIA
     Route: 042
     Dates: start: 20080415, end: 20080710

REACTIONS (18)
  - ANAEMIA [None]
  - ANGINA PECTORIS [None]
  - AORTIC VALVE CALCIFICATION [None]
  - AORTIC VALVE INCOMPETENCE [None]
  - ASTHENIA [None]
  - BLOOD GLUCOSE INCREASED [None]
  - CORONARY ARTERY INSUFFICIENCY [None]
  - DYSPNOEA [None]
  - HAEMOLYSIS [None]
  - HEPATITIS TOXIC [None]
  - LEFT VENTRICULAR HYPERTROPHY [None]
  - LIVER PALPABLE SUBCOSTAL [None]
  - MITRAL VALVE INCOMPETENCE [None]
  - PERICARDIAL EFFUSION [None]
  - POISONING [None]
  - RENAL FAILURE CHRONIC [None]
  - SPLEEN PALPABLE [None]
  - THROMBOCYTOPENIA [None]
